FAERS Safety Report 9444151 (Version 1)
Quarter: 2013Q3

REPORT INFORMATION
  Report Type: Spontaneous
  Country: IT (occurrence: IT)
  Receive Date: 20130807
  Receipt Date: 20130807
  Transmission Date: 20140515
  Serious: Yes (Other)
  Sender: FDA-Public Use
  Company Number: IT-MYLANLABS-2013S1016537

PATIENT
  Age: 60 Year
  Sex: Female

DRUGS (1)
  1. CIPROFLOXACIN [Suspect]
     Indication: URINARY TRACT INFECTION
     Route: 048
     Dates: start: 20130615, end: 20130617

REACTIONS (5)
  - Blood pressure increased [Recovering/Resolving]
  - Nausea [Recovering/Resolving]
  - Respiratory depression [Recovering/Resolving]
  - Tachycardia [Recovering/Resolving]
  - Vertigo [Recovering/Resolving]
